FAERS Safety Report 6349489-1 (Version None)
Quarter: 2009Q3

REPORT INFORMATION
  Report Type: 
  Country: None (occurrence: None)
  Receive Date: 20090911
  Receipt Date: 20090904
  Transmission Date: 20100115
  Serious: Yes (Other)
  Sender: FDA-Public Use
  Company Number: JP-ABBOTT-09P-087-0595387-00

PATIENT
  Age: 61 Year
  Sex: Male

DRUGS (3)
  1. FENOFIBRATE [Suspect]
     Indication: HYPERLIPIDAEMIA
     Dates: start: 20090130, end: 20090831
  2. AMLODIPINE BESYLATE [Concomitant]
     Indication: DRUG USE FOR UNKNOWN INDICATION
     Dates: start: 20060101
  3. IMIDAPRIL HYDROCHLORIDE [Concomitant]
     Indication: DRUG USE FOR UNKNOWN INDICATION
     Dates: start: 20060101

REACTIONS (4)
  - ALANINE AMINOTRANSFERASE INCREASED [None]
  - ASPARTATE AMINOTRANSFERASE INCREASED [None]
  - BLOOD CREATINE PHOSPHOKINASE INCREASED [None]
  - GAMMA-GLUTAMYLTRANSFERASE INCREASED [None]
